FAERS Safety Report 11281242 (Version 1)
Quarter: 2015Q3

REPORT INFORMATION
  Report Type: Spontaneous
  Country: US (occurrence: US)
  Receive Date: 20150717
  Receipt Date: 20150717
  Transmission Date: 20151125
  Serious: No
  Sender: FDA-Public Use
  Company Number: US-GLAXOSMITHKLINE-US2015GSK103182

PATIENT
  Sex: Male

DRUGS (1)
  1. COREG [Suspect]
     Active Substance: CARVEDILOL
     Indication: HEART RATE IRREGULAR
     Dosage: 12.5 MG, BID

REACTIONS (3)
  - Dizziness postural [Unknown]
  - Heart rate increased [Unknown]
  - Drug dose omission [Unknown]
